FAERS Safety Report 6410716-3 (Version None)
Quarter: 2009Q4

REPORT INFORMATION
  Report Type: 
  Country: None (occurrence: None)
  Receive Date: 20091015
  Receipt Date: 20091007
  Transmission Date: 20100525
  Serious: Yes (Other)
  Sender: FDA-Public Use
  Company Number: A0811290A

PATIENT
  Age: 39 Year
  Sex: Male

DRUGS (1)
  1. ASPIRIN + CAFFEINE + SALICYLAMIDE POWDER (ASPIRIN+CAFFEINE+SALICYLA) [Suspect]
     Dosage: SINGLE DOSE / ORAL
     Route: 048
     Dates: start: 20091006

REACTIONS (2)
  - DEAFNESS [None]
  - FEELING ABNORMAL [None]
